FAERS Safety Report 10015244 (Version 1)
Quarter: 2014Q1

REPORT INFORMATION
  Report Type: Spontaneous
  Country: US (occurrence: US)
  Receive Date: 20140317
  Receipt Date: 20140317
  Transmission Date: 20141002
  Serious: No
  Sender: FDA-Public Use
  Company Number: US-PFIZER INC-2014071766

PATIENT
  Sex: Male

DRUGS (1)
  1. VIAGRA [Suspect]
     Dosage: 100 MG, LAST NIGHT AT ABOUT 10PM

REACTIONS (2)
  - Dizziness [Unknown]
  - Gastrooesophageal reflux disease [Unknown]
